FAERS Safety Report 26007482 (Version 2)
Quarter: 2025Q4

REPORT INFORMATION
  Report Type: Spontaneous
  Country: EU (occurrence: EU)
  Receive Date: 20251106
  Receipt Date: 20251119
  Transmission Date: 20260117
  Serious: Yes (Death, Other)
  Sender: BRISTOL-MYERS SQUIBB COMPANY
  Company Number: EU-BRISTOL-MYERS SQUIBB COMPANY-2025-091921

PATIENT
  Age: 65 Year
  Sex: Male
  Weight: 90 kg

DRUGS (4)
  1. OPDIVO [Suspect]
     Active Substance: NIVOLUMAB
     Indication: Pleural mesothelioma malignant
     Route: 042
     Dates: start: 20230417
  2. OPDIVO [Suspect]
     Active Substance: NIVOLUMAB
     Route: 042
  3. YERVOY [Suspect]
     Active Substance: IPILIMUMAB
     Indication: Pleural mesothelioma malignant
     Route: 042
     Dates: start: 20230417
  4. YERVOY [Suspect]
     Active Substance: IPILIMUMAB
     Route: 042

REACTIONS (8)
  - Septic shock [Fatal]
  - Acute kidney injury [Fatal]
  - Pyrexia [Fatal]
  - Hypotension [Fatal]
  - Immune-mediated hypophysitis [Unknown]
  - Diarrhoea [Unknown]
  - Arthralgia [Unknown]
  - General physical health deterioration [Unknown]

NARRATIVE: CASE EVENT DATE: 20240201
